FAERS Safety Report 6752889-9 (Version None)
Quarter: 2010Q2

REPORT INFORMATION
  Report Type: 
  Country: None (occurrence: None)
  Receive Date: 20100602
  Receipt Date: 20100602
  Transmission Date: 20101027
  Serious: Yes (Life-Threatening, Hospitalization)
  Sender: FDA-Public Use
  Company Number: None

PATIENT
  Age: 75 Year
  Sex: Female
  Weight: 65 kg

DRUGS (11)
  1. LOTREL [Suspect]
     Indication: HYPERTENSION
     Dosage: 1 TABLET DAILY PO CHRONIC USE
     Route: 048
  2. LISINOPRIL [Suspect]
     Indication: HYPERTENSION
     Dosage: 1 TABLET DAILY PO CHRONIC USE
     Route: 048
  3. METFORMIN HCL [Concomitant]
  4. DILTIAZEM [Concomitant]
  5. GLYBURIDE [Concomitant]
  6. IBUPROFEN [Concomitant]
  7. FERROUS SULFATE TAB [Concomitant]
  8. ACTOS [Concomitant]
  9. ASPIRIN [Concomitant]
  10. ARICEPT [Concomitant]
  11. LANTUS [Concomitant]

REACTIONS (1)
  - ANGIOEDEMA [None]
